FAERS Safety Report 20112771 (Version 1)
Quarter: 2021Q4

REPORT INFORMATION
  Report Type: Spontaneous
  Country: IT (occurrence: None)
  Receive Date: 20211125
  Receipt Date: 20211125
  Transmission Date: 20220303
  Serious: Yes (Other)
  Sender: FDA-Public Use
  Company Number: IT-Hikma Pharmaceuticals USA Inc.-IT-H14001-21-04947

PATIENT
  Age: 71 Year
  Sex: Male

DRUGS (3)
  1. ROCURONIUM [Suspect]
     Active Substance: ROCURONIUM BROMIDE
     Indication: Neuromuscular blockade
     Dosage: UNKNOWN
  2. SUGAMMADEX [Suspect]
     Active Substance: SUGAMMADEX
     Indication: Neuromuscular blockade reversal
     Route: 065
  3. SUGAMMADEX [Suspect]
     Active Substance: SUGAMMADEX
     Route: 065

REACTIONS (4)
  - Toxicity to various agents [Unknown]
  - Respiration abnormal [Unknown]
  - Drug interaction [Unknown]
  - Neuromuscular block prolonged [Recovered/Resolved]
